FAERS Safety Report 9466045 (Version 1)
Quarter: 2013Q3

REPORT INFORMATION
  Report Type: Spontaneous
  Country: US (occurrence: US)
  Receive Date: 20130820
  Receipt Date: 20130820
  Transmission Date: 20140515
  Serious: Yes (Other)
  Sender: FDA-Public Use
  Company Number: US-JNJFOC-20130803477

PATIENT
  Age: 80 Year
  Sex: Female
  Weight: 56.25 kg

DRUGS (3)
  1. BENADRYL ALLERGY DYE-FREE [Suspect]
     Indication: MULTIPLE ALLERGIES
     Dosage: ONE SOFTGEL
     Route: 048
     Dates: start: 2012, end: 20130805
  2. SINGULAIR [Concomitant]
     Indication: HYPERSENSITIVITY
     Route: 065
  3. CLARITIN [Concomitant]
     Indication: HYPERSENSITIVITY
     Route: 065

REACTIONS (4)
  - Head discomfort [Recovered/Resolved]
  - Loss of consciousness [Recovered/Resolved]
  - Gait disturbance [Recovered/Resolved]
  - Malaise [Recovered/Resolved]
